FAERS Safety Report 7261581-6 (Version None)
Quarter: 2011Q1

REPORT INFORMATION
  Report Type: 
  Country: None (occurrence: None)
  Receive Date: 20110130
  Receipt Date: 20101003
  Transmission Date: 20110831
  Serious: No
  Sender: FDA-Public Use
  Company Number: US-ABBOTT-10P-163-0675318-00

PATIENT
  Age: 32 Year
  Sex: Female

DRUGS (5)
  1. MULTI-VITAMIN [Concomitant]
     Indication: PRODUCT USED FOR UNKNOWN INDICATION
  2. FOLIC ACID [Concomitant]
     Indication: PRODUCT USED FOR UNKNOWN INDICATION
     Route: 048
  3. PROAIR HFA [Concomitant]
     Indication: ASTHMA
  4. METHOTREXATE [Concomitant]
     Indication: PRODUCT USED FOR UNKNOWN INDICATION
     Dosage: 2.5MG 5 TABLETS ONCE A WEEK
     Route: 048
  5. HUMIRA [Suspect]
     Indication: PSORIASIS
     Dates: start: 20100923

REACTIONS (3)
  - NASOPHARYNGITIS [None]
  - COUGH [None]
  - SINUS HEADACHE [None]
